FAERS Safety Report 8621798-2 (Version None)
Quarter: 2012Q3

REPORT INFORMATION
  Report Type: 
  Country: None (occurrence: None)
  Receive Date: 20120822
  Receipt Date: 20120822
  Transmission Date: 20120928
  Serious: No
  Sender: FDA-Public Use
  Company Number: None

PATIENT
  Sex: Female
  Weight: 69.4003 kg

DRUGS (1)
  1. GILDESS FE 1/20 [Suspect]
     Dosage: 1/20 MG  DAILY, ORAL
     Route: 048
     Dates: start: 20120329, end: 20120719

REACTIONS (3)
  - DRUG TOLERANCE DECREASED [None]
  - NAUSEA [None]
  - METRORRHAGIA [None]
